FAERS Safety Report 8756398 (Version 2)
Quarter: 2012Q4

REPORT INFORMATION
  Report Type: 
  Country: DK (occurrence: GB)
  Receive Date: 20120828
  Receipt Date: 20120828
  Transmission Date: 20130627
  Serious: Yes (Disabling)
  Sender: FDA-Public Use
  Company Number: GB-009507513-0707GBR00110

PATIENT

DRUGS (2)
  1. PROPECIA 1MG FILM-COATED TABLET [Suspect]
     Dosage: 1 mg, qd
     Route: 048
     Dates: start: 20010125, end: 20030801
  2. 5-ALPHA REDUCTASE INHIBITOR (UNSPECIFIED) [Concomitant]

REACTIONS (5)
  - Pelvic pain [Not Recovered/Not Resolved]
  - Prostatitis [Not Recovered/Not Resolved]
  - Libido decreased [Recovered/Resolved]
  - Erectile dysfunction [Recovering/Resolving]
  - Prostatitis [Not Recovered/Not Resolved]
